FAERS Safety Report 10308310 (Version 4)
Quarter: 2015Q1

REPORT INFORMATION
  Report Type: Spontaneous
  Country: US (occurrence: US)
  Receive Date: 20140716
  Receipt Date: 20150313
  Transmission Date: 20150720
  Serious: Yes (Life-Threatening, Hospitalization)
  Sender: FDA-Public Use
  Company Number: US-BAYER-2014-104909

PATIENT
  Age: 27 Year
  Sex: Female
  Weight: 88.6 kg

DRUGS (2)
  1. MACROBID [Concomitant]
     Active Substance: NITROFURANTOIN\NITROFURANTOIN MONOHYDRATE
     Indication: URINARY TRACT INFECTION
  2. MIRENA [Suspect]
     Active Substance: LEVONORGESTREL
     Indication: MENORRHAGIA
     Dosage: 20 MCG/24HR, CONT
     Route: 015
     Dates: start: 20111012, end: 20130401

REACTIONS (17)
  - Procedural pain [Not Recovered/Not Resolved]
  - Emotional distress [None]
  - Infection [None]
  - Abdominal pain [Not Recovered/Not Resolved]
  - Infertility female [Not Recovered/Not Resolved]
  - Anhedonia [None]
  - Injury [Not Recovered/Not Resolved]
  - Device failure [None]
  - Device issue [None]
  - Anxiety [None]
  - Medical device discomfort [Not Recovered/Not Resolved]
  - Pregnancy with contraceptive device [None]
  - Drug ineffective [None]
  - Medical device pain [Not Recovered/Not Resolved]
  - Embedded device [Not Recovered/Not Resolved]
  - Scar [Not Recovered/Not Resolved]
  - General physical health deterioration [Not Recovered/Not Resolved]

NARRATIVE: CASE EVENT DATE: 20130401
